FAERS Safety Report 9882728 (Version 1)
Quarter: 2014Q1

REPORT INFORMATION
  Report Type: Spontaneous
  Country: CA (occurrence: CA)
  Receive Date: 20140207
  Receipt Date: 20140207
  Transmission Date: 20141002
  Serious: Yes (Death)
  Sender: FDA-Public Use
  Company Number: PHHY2014CA015351

PATIENT
  Age: 75 Year
  Sex: Male
  Weight: 50 kg

DRUGS (1)
  1. MIACALCIN (CALCITONIN SALMON) [Suspect]
     Dosage: UNK UKN, DAILY
     Route: 006

REACTIONS (2)
  - Laryngeal cancer [Fatal]
  - Oropharyngeal pain [Fatal]
